FAERS Safety Report 17214821 (Version 1)
Quarter: 2019Q4

REPORT INFORMATION
  Report Type: Report from Study
  Country: ES (occurrence: ES)
  Receive Date: 20191230
  Receipt Date: 20191230
  Transmission Date: 20200122
  Serious: Yes (Hospitalization, Other)
  Sender: FDA-Public Use
  Company Number: ES-JNJFOC-20191243541

PATIENT
  Age: 74 Year
  Sex: Male
  Weight: 49.7 kg

DRUGS (1)
  1. TRABECTEDIN [Suspect]
     Active Substance: TRABECTEDIN
     Indication: SOFT TISSUE SARCOMA
     Dosage: CYCLE 3
     Route: 042
     Dates: start: 20190415

REACTIONS (1)
  - Bile duct stenosis [Recovered/Resolved with Sequelae]

NARRATIVE: CASE EVENT DATE: 20191013
